FAERS Safety Report 8088331-8 (Version None)
Quarter: 2012Q1

REPORT INFORMATION
  Report Type: 
  Country: None (occurrence: None)
  Receive Date: 20120128
  Receipt Date: 20110527
  Transmission Date: 20120608
  Serious: No
  Sender: FDA-Public Use
  Company Number: US-ABBOTT-11P-163-0721405-00

PATIENT
  Age: 42 Year
  Sex: Female

DRUGS (4)
  1. TOPAMAX [Concomitant]
     Indication: PRODUCT USED FOR UNKNOWN INDICATION
  2. CELEXA [Concomitant]
     Indication: PRODUCT USED FOR UNKNOWN INDICATION
  3. HUMIRA [Suspect]
     Indication: PSORIASIS
  4. HUMIRA [Suspect]

REACTIONS (11)
  - WEIGHT INCREASED [None]
  - MENORRHAGIA [None]
  - FLUID RETENTION [None]
  - DRUG ADMINISTRATION ERROR [None]
  - ABDOMINAL DISTENSION [None]
  - CONSTIPATION [None]
  - OEDEMA PERIPHERAL [None]
  - HORMONE LEVEL ABNORMAL [None]
  - INAPPROPRIATE SCHEDULE OF DRUG ADMINISTRATION [None]
  - BREAST ENLARGEMENT [None]
  - MENSTRUATION IRREGULAR [None]
